FAERS Safety Report 19473729 (Version 1)
Quarter: 2021Q2

REPORT INFORMATION
  Report Type: Spontaneous
  Country: US (occurrence: US)
  Receive Date: 20210629
  Receipt Date: 20210629
  Transmission Date: 20210717
  Serious: No
  Sender: FDA-Public Use
  Company Number: US-ASTELLAS-2021US009329

PATIENT
  Age: 57 Year
  Sex: Male

DRUGS (3)
  1. XOSPATA [Suspect]
     Active Substance: GILTERITINIB
     Indication: POST PROCEDURAL COMPLICATION
     Route: 065
     Dates: start: 20200710
  2. TACROLIMUS. [Interacting]
     Active Substance: TACROLIMUS
     Indication: GRAFT VERSUS HOST DISEASE
     Route: 065
     Dates: start: 20200318
  3. TACROLIMUS. [Interacting]
     Active Substance: TACROLIMUS
     Dosage: UNK (INCREASED DOSE), UNKNOWN FREQ.
     Route: 065

REACTIONS (3)
  - Drug interaction [Unknown]
  - Immunosuppressant drug level decreased [Unknown]
  - Product use in unapproved indication [Unknown]

NARRATIVE: CASE EVENT DATE: 20200713
